FAERS Safety Report 8064656-7 (Version None)
Quarter: 2012Q1

REPORT INFORMATION
  Report Type: 
  Country: None (occurrence: None)
  Receive Date: 20120123
  Receipt Date: 20111109
  Transmission Date: 20120608
  Serious: Yes (Hospitalization)
  Sender: FDA-Public Use
  Company Number: CH-ROCHE-1011325

PATIENT
  Age: 79 Year
  Sex: Female

DRUGS (9)
  1. ESCITALOPRAM [Concomitant]
     Route: 048
  2. ROCEPHIN [Suspect]
     Indication: SEPSIS
     Route: 042
     Dates: start: 20111014, end: 20111015
  3. LAMICTAL [Concomitant]
  4. INVANZ [Suspect]
     Indication: SEPSIS
     Route: 042
     Dates: start: 20111016, end: 20111018
  5. NEO-MERCAZOLE TAB [Concomitant]
     Route: 048
  6. MOTILIUM (SWITZERLAND) [Concomitant]
     Route: 048
  7. CIPROFLOXACIN HCL [Suspect]
     Indication: SEPSIS
     Route: 048
     Dates: start: 20111014, end: 20111016
  8. METOPROLOL TARTRATE AND HYDROCHLOROTHIAZIDE [Concomitant]
     Route: 048
  9. NEXIUM [Concomitant]
     Route: 048

REACTIONS (3)
  - HEPATOCELLULAR INJURY [None]
  - HYPERBILIRUBINAEMIA [None]
  - CHOLECYSTITIS [None]
